FAERS Safety Report 5482043-2 (Version None)
Quarter: 2007Q4

REPORT INFORMATION
  Report Type: 
  Country: None (occurrence: None)
  Receive Date: 20071004
  Receipt Date: 20070919
  Transmission Date: 20080405
  Serious: Yes (Other)
  Sender: FDA-Public Use
  Company Number: 2007RR-10202

PATIENT
  Age: 11 Year
  Sex: Female

DRUGS (3)
  1. IBUPROFEN [Suspect]
  2. COLISTIN SULFATE [Suspect]
  3. TOBRAMYCIN [Suspect]

REACTIONS (1)
  - RENAL FAILURE ACUTE [None]
